FAERS Safety Report 22106457 (Version 1)
Quarter: 2023Q1

REPORT INFORMATION
  Report Type: Spontaneous
  Country: US (occurrence: US)
  Receive Date: 20230317
  Receipt Date: 20230317
  Transmission Date: 20230418
  Serious: Yes (Disabling, Other)
  Sender: FDA-Public Use
  Company Number: US-SANOFI-01525691

PATIENT
  Age: 68 Year
  Sex: Male

DRUGS (1)
  1. DUPIXENT [Suspect]
     Active Substance: DUPILUMAB
     Indication: Eczema
     Dosage: UNK
     Route: 065
     Dates: start: 202107

REACTIONS (10)
  - Diplopia [Recovered/Resolved]
  - Gait disturbance [Recovered/Resolved]
  - Myasthenia gravis [Unknown]
  - Coma [Unknown]
  - Vision blurred [Recovered/Resolved]
  - Cerebral disorder [Unknown]
  - Visual field defect [Unknown]
  - Insomnia [Unknown]
  - Inadequate diet [Unknown]
  - Stress [Unknown]
